FAERS Safety Report 10506836 (Version 4)
Quarter: 2015Q2

REPORT INFORMATION
  Report Type: Report from Study
  Country: US (occurrence: US)
  Receive Date: 20141009
  Receipt Date: 20150527
  Transmission Date: 20150821
  Serious: Yes (Other)
  Sender: FDA-Public Use
  Company Number: US-ROCHE-1468234

PATIENT
  Sex: Male
  Weight: 22.68 kg

DRUGS (7)
  1. NUTROPIN AQ [Suspect]
     Active Substance: SOMATROPIN
     Route: 058
  2. VITAMIN D3 [Concomitant]
     Active Substance: CHOLECALCIFEROL
     Route: 048
  3. NUTROPIN AQ [Suspect]
     Active Substance: SOMATROPIN
     Route: 058
  4. NUTROPIN AQ [Suspect]
     Active Substance: SOMATROPIN
     Indication: FAILURE TO THRIVE
     Route: 058
  5. RITALIN [Concomitant]
     Active Substance: METHYLPHENIDATE HYDROCHLORIDE
  6. CALCIUM CARBONATE. [Concomitant]
     Active Substance: CALCIUM CARBONATE
     Dosage: 1250MG/5ML
     Route: 048
  7. CONCERTA [Concomitant]
     Active Substance: METHYLPHENIDATE HYDROCHLORIDE
     Route: 048

REACTIONS (13)
  - Weight gain poor [Not Recovered/Not Resolved]
  - Osteochondroma [Unknown]
  - Growth retardation [Unknown]
  - Headache [Not Recovered/Not Resolved]
  - Abnormal behaviour [Unknown]
  - Diarrhoea [Unknown]
  - Drug dose omission [Unknown]
  - Eating disorder [Unknown]
  - Headache [Unknown]
  - Temperature intolerance [Unknown]
  - Cataract [Recovering/Resolving]
  - Weight decreased [Unknown]
  - Incorrect product storage [Unknown]
